FAERS Safety Report 9790344 (Version 1)
Quarter: 2013Q4

REPORT INFORMATION
  Report Type: Spontaneous
  Country: CH (occurrence: CH)
  Receive Date: 20131231
  Receipt Date: 20131231
  Transmission Date: 20140711
  Serious: Yes (Hospitalization)
  Sender: FDA-Public Use
  Company Number: CH-SA-2013SA133482

PATIENT
  Age: 72 Year
  Sex: Female
  Weight: 76 kg

DRUGS (4)
  1. CLEXANE [Suspect]
     Indication: PRODUCT USED FOR UNKNOWN INDICATION
     Dosage: FORM:VIALS
     Route: 058
     Dates: start: 20130929, end: 20131001
  2. SINTROM I MITIS [Suspect]
     Indication: ATRIAL FIBRILLATION
     Route: 048
     Dates: start: 20130905, end: 20131001
  3. ASPIRIN CARDIO [Suspect]
     Indication: ANTIPLATELET THERAPY
     Route: 048
     Dates: end: 20131001
  4. LOGIMAX [Concomitant]
     Route: 048
     Dates: end: 20131001

REACTIONS (4)
  - Cerebral ischaemia [Recovered/Resolved]
  - Haematoma [Recovering/Resolving]
  - Drug ineffective [Unknown]
  - Medication error [Unknown]
